FAERS Safety Report 6321291-6 (Version None)
Quarter: 2009Q3

REPORT INFORMATION
  Report Type: 
  Country: None (occurrence: None)
  Receive Date: 20090822
  Receipt Date: 20090109
  Transmission Date: 20100115
  Serious: No
  Sender: FDA-Public Use
  Company Number: US-ABBOTT-09P-163-0496958-00

PATIENT
  Sex: Male

DRUGS (4)
  1. NIASPAN [Suspect]
     Indication: HYPERCHOLESTEROLAEMIA
     Route: 048
     Dates: start: 20081226
  2. COUMADIN [Concomitant]
     Indication: DRUG USE FOR UNKNOWN INDICATION
  3. METFORMIN [Concomitant]
     Indication: DRUG USE FOR UNKNOWN INDICATION
  4. UNKNOWN MEDICATIONS [Concomitant]
     Indication: DRUG USE FOR UNKNOWN INDICATION

REACTIONS (2)
  - BLOOD GLUCOSE INCREASED [None]
  - INTERNATIONAL NORMALISED RATIO DECREASED [None]
